FAERS Safety Report 8469622-5 (Version None)
Quarter: 2012Q2

REPORT INFORMATION
  Report Type: 
  Country: None (occurrence: None)
  Receive Date: 20120626
  Receipt Date: 20120516
  Transmission Date: 20120825
  Serious: No
  Sender: FDA-Public Use
  Company Number: US-TEVA-338559USA

PATIENT
  Sex: Male

DRUGS (1)
  1. QNASL [Suspect]
     Indication: RHINITIS ALLERGIC
     Dosage: 40 MICROGRAM;
     Route: 045
     Dates: start: 20120515, end: 20120516

REACTIONS (1)
  - BURNING SENSATION [None]
